FAERS Safety Report 8684037 (Version 2)
Quarter: 2013Q4

REPORT INFORMATION
  Report Type: Report from Study
  Country: US (occurrence: US)
  Receive Date: 20120726
  Receipt Date: 20131031
  Transmission Date: 20140711
  Serious: No
  Sender: FDA-Public Use
  Company Number: US-009507513-2012SP030355

PATIENT
  Age: 48 Year
  Sex: Female
  Weight: 106.58 kg

DRUGS (6)
  1. BOCEPREVIR [Suspect]
     Dosage: 800 MG, TID
     Route: 048
  2. PEG-INTRON [Suspect]
     Dosage: 150 MICROGRAM, UNK
     Route: 058
  3. RIBAPAK [Suspect]
     Dosage: 1200 UNK, QD
     Route: 048
  4. PRILOSEC [Concomitant]
     Dosage: 20 MG, UNKNOWN
     Route: 048
  5. CYANOCOBALAMIN [Concomitant]
     Dosage: 100 ?G, UNKNOWN
     Route: 048
  6. PROBIOTICS (UNSPECIFIED) [Concomitant]
     Dosage: UNK UNK, UNKNOWN
     Route: 048

REACTIONS (5)
  - Visual impairment [Recovered/Resolved]
  - Dysgeusia [Unknown]
  - Fatigue [Unknown]
  - Anaemia [Unknown]
  - Influenza like illness [Unknown]
